FAERS Safety Report 5415363-8 (Version None)
Quarter: 2007Q3

REPORT INFORMATION
  Report Type: 
  Country: None (occurrence: None)
  Receive Date: 20070813
  Receipt Date: 20070723
  Transmission Date: 20080115
  Serious: Yes (Other)
  Sender: FDA-Public Use
  Company Number: A200700006

PATIENT
  Age: 19 Year
  Sex: Female
  Weight: 91.6 kg

DRUGS (2)
  1. SOLIRIS [Suspect]
     Indication: PAROXYSMAL NOCTURNAL HAEMOGLOBINURIA
     Dosage: 600 MG, SINGLE, INTRAVENOUS
     Route: 042
     Dates: start: 20070419, end: 20070419
  2. COUMADIN [Concomitant]

REACTIONS (4)
  - CHEST DISCOMFORT [None]
  - CHOLELITHIASIS [None]
  - DYSPNOEA [None]
  - PALPITATIONS [None]
